FAERS Safety Report 5896938-9 (Version None)
Quarter: 2008Q3

REPORT INFORMATION
  Report Type: 
  Country: None (occurrence: None)
  Receive Date: 20080924
  Receipt Date: 20080626
  Transmission Date: 20090109
  Serious: Yes (Hospitalization, Other)
  Sender: FDA-Public Use
  Company Number: US-ASTRAZENECA-2008UW06618

PATIENT
  Age: 18011 Day
  Sex: Male
  Weight: 79.8 kg

DRUGS (10)
  1. SEROQUEL [Suspect]
     Indication: SCHIZOPHRENIA, PARANOID TYPE
     Route: 048
     Dates: start: 20031212, end: 20040929
  2. SEROQUEL [Suspect]
     Route: 048
     Dates: start: 20041215, end: 20060301
  3. SEROQUEL [Suspect]
     Route: 048
     Dates: start: 20060620
  4. RISPERIDONE [Concomitant]
     Dates: start: 20000915
  5. RISPERIDONE [Concomitant]
     Dates: start: 20001108, end: 20010406
  6. RISPERIDONE [Concomitant]
     Dates: start: 20030618, end: 20030808
  7. THORAZINE [Concomitant]
     Dates: start: 20030101
  8. TRILAFON [Concomitant]
     Dates: start: 19981221
  9. TRILAFON [Concomitant]
     Dates: start: 19990218, end: 19990718
  10. ZYPREXA [Concomitant]
     Dates: start: 20040317

REACTIONS (3)
  - BLOOD TRIGLYCERIDES INCREASED [None]
  - HYPEROSMOLAR STATE [None]
  - TYPE 2 DIABETES MELLITUS [None]
